FAERS Safety Report 16719157 (Version 1)
Quarter: 2019Q3

REPORT INFORMATION
  Report Type: Spontaneous
  Country: IN (occurrence: IN)
  Receive Date: 20190820
  Receipt Date: 20190820
  Transmission Date: 20191005
  Serious: Yes (Other)
  Sender: FDA-Public Use
  Company Number: IN-ALEMBIC PHARMACUETICALS LIMITED-2019SCAL000544

PATIENT
  Age: 59 Year
  Sex: Female

DRUGS (1)
  1. LITHIUM CARBONATE. [Suspect]
     Active Substance: LITHIUM CARBONATE
     Indication: BIPOLAR DISORDER
     Dosage: UNK

REACTIONS (7)
  - Chest pain [Recovered/Resolved]
  - Bundle branch block left [Recovered/Resolved]
  - Ejection fraction decreased [Recovered/Resolved]
  - Toxicity to various agents [Recovered/Resolved]
  - Left ventricular dilatation [Recovered/Resolved]
  - Dyspnoea [Recovered/Resolved]
  - Cardiotoxicity [Recovered/Resolved]
